FAERS Safety Report 5297524-4 (Version None)
Quarter: 2007Q2

REPORT INFORMATION
  Report Type: 
  Country: None (occurrence: None)
  Receive Date: 20070416
  Receipt Date: 20070405
  Transmission Date: 20071010
  Serious: Yes (Other)
  Sender: FDA-Public Use
  Company Number: DE-JNJFOC-20070304290

PATIENT
  Sex: Female
  Weight: 58 kg

DRUGS (3)
  1. ITRACOL [Suspect]
     Route: 048
  2. ITRACOL [Suspect]
     Indication: TINEA PEDIS
     Route: 048
  3. L-THYROXIN [Concomitant]
     Route: 048

REACTIONS (10)
  - ALOPECIA [None]
  - ASTHENIA [None]
  - COLD SWEAT [None]
  - DYSPNOEA [None]
  - HAIR TEXTURE ABNORMAL [None]
  - HYPERTENSION [None]
  - NEURITIS [None]
  - PALPITATIONS [None]
  - SKIN DISCOLOURATION [None]
  - TREMOR [None]
